FAERS Safety Report 16941417 (Version 1)
Quarter: 2019Q4

REPORT INFORMATION
  Report Type: Spontaneous
  Country: US (occurrence: US)
  Receive Date: 20190829
  Receipt Date: 20190829
  Transmission Date: 20200122
  Serious: Yes (Hospitalization)
  Sender: FDA-Public Use
  Company Number: None

PATIENT
  Age: 84 Year
  Sex: Female
  Weight: 72.7 kg

DRUGS (2)
  1. PALBOCICLIB [Suspect]
     Active Substance: PALBOCICLIB
     Dates: end: 20190821
  2. FEMARA [Suspect]
     Active Substance: LETROZOLE
     Dates: end: 20190821

REACTIONS (4)
  - Pyrexia [None]
  - Urine leukocyte esterase positive [None]
  - Bacterial test [None]
  - Cough [None]

NARRATIVE: CASE EVENT DATE: 20190820
